FAERS Safety Report 7690240-0 (Version None)
Quarter: 2011Q3

REPORT INFORMATION
  Report Type: 
  Country: None (occurrence: None)
  Receive Date: 20110818
  Receipt Date: 20110815
  Transmission Date: 20111222
  Serious: No
  Sender: FDA-Public Use
  Company Number: US-PFIZER INC-2011188087

PATIENT
  Sex: Female

DRUGS (1)
  1. LO/OVRAL [Suspect]
     Indication: ORAL CONTRACEPTION
     Dosage: UNK
     Dates: start: 19710801, end: 19710801

REACTIONS (1)
  - WEIGHT INCREASED [None]
